FAERS Safety Report 13900823 (Version 1)
Quarter: 2017Q3

REPORT INFORMATION
  Report Type: Spontaneous
  Country: US (occurrence: US)
  Receive Date: 20170824
  Receipt Date: 20170824
  Transmission Date: 20171127
  Serious: Yes (Other)
  Sender: FDA-Public Use
  Company Number: US-TEVA-799717USA

PATIENT
  Age: 40 Year
  Sex: Male

DRUGS (8)
  1. ACITRETIN. [Concomitant]
     Active Substance: ACITRETIN
  2. STELARA [Concomitant]
     Active Substance: USTEKINUMAB
  3. SECUKINUMAB [Concomitant]
     Active Substance: SECUKINUMAB
  4. METHOTREXATE. [Suspect]
     Active Substance: METHOTREXATE
     Route: 065
  5. NEORAL [Concomitant]
     Active Substance: CYCLOSPORINE
  6. REMICADE [Concomitant]
     Active Substance: INFLIXIMAB
  7. HUMIRA [Concomitant]
     Active Substance: ADALIMUMAB
  8. ENBREL [Concomitant]
     Active Substance: ETANERCEPT

REACTIONS (11)
  - Vein rupture [Recovering/Resolving]
  - Psoriasis [Recovering/Resolving]
  - Injection site swelling [Recovering/Resolving]
  - Myalgia [Recovering/Resolving]
  - Insomnia [Recovering/Resolving]
  - Nausea [Recovering/Resolving]
  - Pain in extremity [Recovering/Resolving]
  - Muscular weakness [Recovering/Resolving]
  - Headache [Recovering/Resolving]
  - Injection site haemorrhage [Recovering/Resolving]
  - Drug ineffective [Recovering/Resolving]
